FAERS Safety Report 13389416 (Version 11)
Quarter: 2019Q4

REPORT INFORMATION
  Report Type: Report from Study
  Country: US (occurrence: US)
  Receive Date: 20170330
  Receipt Date: 20191217
  Transmission Date: 20200122
  Serious: No
  Sender: FDA-Public Use
  Company Number: PHEH2017US009331

PATIENT
  Age: 30 Year
  Sex: Female

DRUGS (2)
  1. COSENTYX [Suspect]
     Active Substance: SECUKINUMAB
     Indication: PSORIATIC ARTHROPATHY
     Dosage: 300 UNK, UNK
     Route: 058
     Dates: start: 201611
  2. COSENTYX [Suspect]
     Active Substance: SECUKINUMAB
     Indication: PSORIASIS
     Dosage: 300 MG, QMO
     Route: 058
     Dates: start: 20161115

REACTIONS (16)
  - Pain [Unknown]
  - Therapeutic response unexpected [Unknown]
  - Rhinorrhoea [Not Recovered/Not Resolved]
  - Injection site haemorrhage [Unknown]
  - Malaise [Unknown]
  - Psoriasis [Unknown]
  - Skin discolouration [Recovering/Resolving]
  - Inflammation [Unknown]
  - Alopecia [Unknown]
  - Cough [Unknown]
  - Temperature intolerance [Unknown]
  - Nasopharyngitis [Unknown]
  - Skin plaque [Unknown]
  - Dizziness [Unknown]
  - Arthralgia [Unknown]
  - Dry skin [Unknown]

NARRATIVE: CASE EVENT DATE: 20190529
